FAERS Safety Report 8070757-X (Version None)
Quarter: 2012Q1

REPORT INFORMATION
  Report Type: 
  Country: None (occurrence: None)
  Receive Date: 20120125
  Receipt Date: 20120123
  Transmission Date: 20120608
  Serious: Yes (Hospitalization, Other)
  Sender: FDA-Public Use
  Company Number: US-JNJFOC-20120101593

PATIENT
  Sex: Female

DRUGS (12)
  1. ALLOPURINOL [Concomitant]
     Indication: GOUT
     Route: 048
  2. POTASSIUM CHLORIDE [Concomitant]
     Indication: DRUG THERAPY
     Route: 048
  3. CARDURA [Concomitant]
     Indication: BLOOD PRESSURE
     Route: 048
  4. DITROPAN XL [Suspect]
     Indication: PRODUCT USED FOR UNKNOWN INDICATION
     Route: 048
  5. LASIX [Concomitant]
     Indication: FLUID RETENTION
     Route: 048
  6. PROTONIX [Concomitant]
     Indication: GASTRIC DISORDER
     Route: 048
     Dates: start: 20110101
  7. DURAGESIC-100 [Suspect]
     Indication: PAIN
     Dosage: 75 UG/HR+75UG/HR
     Route: 062
  8. VASOTEC [Concomitant]
     Indication: BLOOD PRESSURE
     Route: 048
  9. COUMADIN [Concomitant]
     Indication: THROMBOSIS
     Route: 048
  10. SKELAXIN [Concomitant]
     Indication: MUSCLE RELAXANT THERAPY
     Route: 048
  11. PRILOSEC [Concomitant]
     Route: 065
     Dates: end: 20110101
  12. ALLEGRA-D 12 HOUR [Concomitant]
     Indication: SINUS DISORDER
     Route: 048

REACTIONS (12)
  - DYSKINESIA [None]
  - BLOOD CHOLESTEROL INCREASED [None]
  - DEHYDRATION [None]
  - KNEE ARTHROPLASTY [None]
  - LABORATORY TEST ABNORMAL [None]
  - INCORRECT DOSE ADMINISTERED [None]
  - PRODUCT QUALITY ISSUE [None]
  - DRUG ADMINISTERED AT INAPPROPRIATE SITE [None]
  - ARTHROPATHY [None]
  - FALL [None]
  - ASTHENIA [None]
  - PAIN [None]
